FAERS Safety Report 7815410-X (Version None)
Quarter: 2011Q4

REPORT INFORMATION
  Report Type: 
  Country: None (occurrence: None)
  Receive Date: 20111014
  Receipt Date: 20111011
  Transmission Date: 20120403
  Serious: Yes (Other)
  Sender: FDA-Public Use
  Company Number: US-ROXANE LABORATORIES, INC.-2011-RO-01450RO

PATIENT
  Age: 9 Year
  Sex: Female

DRUGS (8)
  1. PROPRANOLOL [Suspect]
     Indication: PORTAL HYPERTENSION
  2. FLUCONAZOLE [Suspect]
     Indication: VULVOVAGINAL CANDIDIASIS
     Route: 048
     Dates: start: 20090721, end: 20090729
  3. FLUTICASONE PROPIONATE [Suspect]
     Indication: ASTHMA
     Dosage: 440 MCG
     Route: 055
     Dates: start: 20090602, end: 20090629
  4. PREDNISONE [Suspect]
     Indication: ASTHMA
  5. PULMOZYME [Suspect]
     Indication: CYSTIC FIBROSIS
     Dates: start: 20081216
  6. AZITHROMYCIN [Suspect]
     Indication: CYSTIC FIBROSIS
     Dates: start: 20081216
  7. FLUTICASONE PROPIONATE [Suspect]
     Dosage: 880 MCG
     Route: 055
     Dates: start: 20090630, end: 20090925
  8. ALBUTEROL [Suspect]
     Indication: CYSTIC FIBROSIS
     Dates: start: 20081216

REACTIONS (5)
  - CYSTIC FIBROSIS RELATED DIABETES [None]
  - PITUITARY-DEPENDENT CUSHING'S SYNDROME [None]
  - ASTHMA [None]
  - ADRENAL INSUFFICIENCY [None]
  - VULVOVAGINAL CANDIDIASIS [None]
